FAERS Safety Report 6230766-X (Version None)
Quarter: 2009Q2

REPORT INFORMATION
  Report Type: 
  Country: None (occurrence: None)
  Receive Date: 20090616
  Receipt Date: 20090604
  Transmission Date: 20091009
  Serious: Yes (Hospitalization)
  Sender: FDA-Public Use
  Company Number: GB-PFIZER INC-2009218570

PATIENT
  Age: 69 Year

DRUGS (12)
  1. BLINDED *PLACEBO [Suspect]
     Indication: CARDIAC FAILURE
     Dosage: UNK
     Route: 048
     Dates: start: 20080522
  2. BLINDED EPLERENONE [Suspect]
     Indication: CARDIAC FAILURE
     Dosage: UNK
     Route: 048
     Dates: start: 20080522
  3. ACETYLSALICYLIC ACID [Concomitant]
     Dosage: UNK
     Route: 048
     Dates: start: 20080218
  4. ATORVASTATIN [Concomitant]
     Dosage: UNK
     Route: 048
     Dates: start: 20081001
  5. BISOPROLOL [Concomitant]
     Dosage: UNK
     Route: 048
     Dates: start: 20080401
  6. BUMETANIDE [Concomitant]
     Dosage: UNK
     Route: 048
     Dates: start: 20090119
  7. CANDESARTAN [Concomitant]
     Dosage: UNK
     Route: 048
     Dates: start: 20080515
  8. ISOSORBIDE MONONITRATE [Concomitant]
     Dosage: UNK
     Route: 048
     Dates: start: 20081118
  9. ADCAL-D3 [Concomitant]
     Dosage: UNK
     Route: 048
  10. CITALOPRAM [Concomitant]
     Dosage: UNK
     Route: 048
     Dates: start: 20081101
  11. OMEPRAZOLE [Concomitant]
     Dosage: UNK
     Route: 048
     Dates: start: 20080215
  12. WARFARIN [Concomitant]
     Dosage: UNK
     Route: 048
     Dates: start: 20080225

REACTIONS (1)
  - PALPITATIONS [None]
